FAERS Safety Report 15339881 (Version 2)
Quarter: 2018Q4

REPORT INFORMATION
  Report Type: Spontaneous
  Country: CO (occurrence: CO)
  Receive Date: 20180831
  Receipt Date: 20181022
  Transmission Date: 20190204
  Serious: Yes (Death, Hospitalization)
  Sender: FDA-Public Use
  Company Number: CO-BAXTER-2018BAX022738

PATIENT
  Age: 87 Year
  Sex: Male
  Weight: 60 kg

DRUGS (1)
  1. DIANEAL PD-2 WITH DEXTROSE [Suspect]
     Active Substance: CALCIUM CHLORIDE\DEXTROSE\MAGNESIUM CHLORIDE\SODIUM CHLORIDE\SODIUM LACTATE
     Indication: CHRONIC KIDNEY DISEASE
     Route: 033
     Dates: start: 2012, end: 20180922

REACTIONS (2)
  - Sepsis [Fatal]
  - Diabetic foot [Not Recovered/Not Resolved]

NARRATIVE: CASE EVENT DATE: 20180731
